FAERS Safety Report 23935926 (Version 1)
Quarter: 2024Q2

REPORT INFORMATION
  Report Type: Report from Study
  Country: US (occurrence: US)
  Receive Date: 20240604
  Receipt Date: 20240604
  Transmission Date: 20240716
  Serious: Yes (Other)
  Sender: FDA-Public Use
  Company Number: US-UCBSA-2024027004

PATIENT

DRUGS (2)
  1. MIDAZOLAM [Suspect]
     Active Substance: MIDAZOLAM
     Indication: Sedative therapy
     Dosage: UNK
  2. MIDAZOLAM [Suspect]
     Active Substance: MIDAZOLAM
     Indication: Off label use

REACTIONS (6)
  - Hypoxia [Unknown]
  - Apnoea [Unknown]
  - Bradycardia [Unknown]
  - Hypotension [Unknown]
  - Vomiting [Unknown]
  - Off label use [Unknown]
